FAERS Safety Report 7944649-8 (Version None)
Quarter: 2011Q4

REPORT INFORMATION
  Report Type: 
  Country: None (occurrence: None)
  Receive Date: 20111129
  Receipt Date: 20111123
  Transmission Date: 20120403
  Serious: Yes (Life-Threatening, Hospitalization)
  Sender: FDA-Public Use
  Company Number: US-US-EMD SERONO, INC.-7097846

PATIENT
  Sex: Female

DRUGS (6)
  1. PREMPRO [Concomitant]
  2. REBIF [Suspect]
     Indication: MULTIPLE SCLEROSIS
     Route: 058
     Dates: start: 20110711, end: 20111001
  3. FLEXERIL [Suspect]
  4. UNSPECIFIED ANTIDEPRESSANT [Concomitant]
     Indication: DEPRESSION
  5. ZANAFLEX [Concomitant]
  6. DIAZEPAM [Suspect]

REACTIONS (5)
  - SUICIDE ATTEMPT [None]
  - INFLUENZA LIKE ILLNESS [None]
  - INTENTIONAL OVERDOSE [None]
  - DEPRESSION [None]
  - LOSS OF CONSCIOUSNESS [None]
